FAERS Safety Report 5950052-2 (Version None)
Quarter: 2008Q4

REPORT INFORMATION
  Report Type: 
  Country: None (occurrence: None)
  Receive Date: 20081112
  Receipt Date: 20081031
  Transmission Date: 20090506
  Serious: Yes (Hospitalization)
  Sender: FDA-Public Use
  Company Number: BR-ELI_LILLY_AND_COMPANY-BR200811000073

PATIENT
  Age: 82 Year
  Sex: Male
  Weight: 60 kg

DRUGS (4)
  1. FORTEO [Suspect]
     Indication: OSTEOPOROSIS
     Dosage: 20 UG, DAILY (1/D)
     Route: 058
  2. PURAN T4 [Concomitant]
     Indication: HYPOTHYROIDISM
     Dosage: 75 UG, DAILY (1/D)
     Route: 048
  3. AMIODARONE HCL [Concomitant]
     Indication: TACHYCARDIA
     Dosage: 100 MG, 5/W
     Route: 048
  4. SEROQUEL [Concomitant]
     Indication: DEMENTIA ALZHEIMER'S TYPE
     Dosage: UNK, DAILY (1/D)
     Route: 048

REACTIONS (3)
  - FALL [None]
  - PNEUMONIA [None]
  - RIB FRACTURE [None]
